FAERS Safety Report 25240383 (Version 1)
Quarter: 2025Q2

REPORT INFORMATION
  Report Type: Spontaneous
  Country: US (occurrence: None)
  Receive Date: 20250425
  Receipt Date: 20250425
  Transmission Date: 20250717
  Serious: Yes (Death, Hospitalization)
  Sender: FDA-CTU
  Company Number: None

PATIENT
  Age: 44 Year
  Sex: Male
  Weight: 103.5 kg

DRUGS (12)
  1. JARDIANCE [Suspect]
     Active Substance: EMPAGLIFLOZIN
     Indication: Cardiac disorder
     Dosage: 1 TABLET DAILY ORAL ?
     Route: 048
     Dates: start: 20240401, end: 20241210
  2. MONTELUKAST [Concomitant]
     Active Substance: MONTELUKAST
  3. ISOSORBIDE MONONITRATE [Concomitant]
     Active Substance: ISOSORBIDE MONONITRATE
  4. CARVEDILOL [Concomitant]
     Active Substance: CARVEDILOL
  5. asoirin 81 [Concomitant]
  6. TORSEMIDE [Concomitant]
     Active Substance: TORSEMIDE
  7. ELIQUIS [Concomitant]
     Active Substance: APIXABAN
  8. ATORVASTATIN [Concomitant]
     Active Substance: ATORVASTATIN
  9. inject for anemia while on dialysis [Concomitant]
  10. LOSARTAN [Concomitant]
     Active Substance: LOSARTAN
  11. TYLENOL [Concomitant]
     Active Substance: ACETAMINOPHEN
  12. THIAMINE HYDROCHLORIDE [Concomitant]
     Active Substance: THIAMINE HYDROCHLORIDE

REACTIONS (6)
  - Proctalgia [None]
  - Haemorrhoids [None]
  - Septic shock [None]
  - Myocardial infarction [None]
  - Necrotising fasciitis [None]
  - Post procedural complication [None]

NARRATIVE: CASE EVENT DATE: 20241229
